FAERS Safety Report 10077631 (Version 2)
Quarter: 2014Q2

REPORT INFORMATION
  Report Type: Spontaneous
  Country: US (occurrence: US)
  Receive Date: 20140414
  Receipt Date: 20140414
  Transmission Date: 20141212
  Serious: No
  Sender: FDA-Public Use
  Company Number: US-BANPHARM-20142030

PATIENT
  Age: 63 Year
  Sex: Male
  Weight: 88.45 kg

DRUGS (4)
  1. ALEVE LIQUID GELS 220 MG [Suspect]
     Dosage: 1 DF, ONCE,
     Route: 048
     Dates: start: 20140110, end: 20140110
  2. THERA-M (HIGH PROTEIN VITAMIN) [Concomitant]
  3. GABAPENTIN [Concomitant]
  4. LISINOPRIL [Concomitant]

REACTIONS (2)
  - Swollen tongue [Recovered/Resolved]
  - Speech disorder [Recovered/Resolved]
